FAERS Safety Report 22348027 (Version 2)
Quarter: 2023Q2

REPORT INFORMATION
  Report Type: Report from Study
  Country: US (occurrence: US)
  Receive Date: 20230522
  Receipt Date: 20230523
  Transmission Date: 20230722
  Serious: No
  Sender: FDA-Public Use
  Company Number: US-002147023-NVSC2023US111482

PATIENT
  Age: 29 Year
  Sex: Female
  Weight: 61.23 kg

DRUGS (3)
  1. CLOBETASOL [Suspect]
     Active Substance: CLOBETASOL
     Indication: Psoriasis
     Dosage: UNK
     Route: 061
  2. CLOBETASOL [Suspect]
     Active Substance: CLOBETASOL
     Indication: Guttate psoriasis
  3. CLOBETASOL [Suspect]
     Active Substance: CLOBETASOL
     Indication: Psoriasis

REACTIONS (5)
  - Protein total increased [Unknown]
  - Blood albumin increased [Unknown]
  - Blood bilirubin increased [Unknown]
  - Red blood cell count decreased [Unknown]
  - Mean platelet volume increased [Unknown]

NARRATIVE: CASE EVENT DATE: 20230315
